FAERS Safety Report 10152756 (Version 1)
Quarter: 2014Q2

REPORT INFORMATION
  Report Type: Spontaneous
  Country: US (occurrence: None)
  Receive Date: 20140502
  Receipt Date: 20140502
  Transmission Date: 20141212
  Serious: Yes (Other)
  Sender: FDA-Public Use
  Company Number: None

PATIENT
  Age: 53 Year
  Sex: Male
  Weight: 132.9 kg

DRUGS (10)
  1. REVATIO [Suspect]
  2. ASA [Concomitant]
  3. ATORVASTATIN [Concomitant]
  4. BYSTOLIC [Concomitant]
  5. CARDURA [Concomitant]
  6. LASIX [Concomitant]
  7. GLIMEPIRIDE [Concomitant]
  8. KLOR-CON [Concomitant]
  9. LISINOPRIL [Concomitant]
  10. WARFARIN [Concomitant]

REACTIONS (2)
  - Nausea [None]
  - Fatigue [None]
